FAERS Safety Report 5966501-X (Version None)
Quarter: 2008Q4

REPORT INFORMATION
  Report Type: 
  Country: None (occurrence: None)
  Receive Date: 20081125
  Receipt Date: 20081121
  Transmission Date: 20090506
  Serious: Yes (Other)
  Sender: FDA-Public Use
  Company Number: CA-ASTRAZENECA-2008UW24948

PATIENT
  Age: 65 Year
  Sex: Female

DRUGS (1)
  1. SYMBICORT [Suspect]
     Route: 055
     Dates: start: 20030101

REACTIONS (3)
  - DRUG INEFFECTIVE [None]
  - DYSPNOEA [None]
  - PRODUCT QUALITY ISSUE [None]
